FAERS Safety Report 13752754 (Version 3)
Quarter: 2017Q3

REPORT INFORMATION
  Report Type: Spontaneous
  Country: US (occurrence: US)
  Receive Date: 20170714
  Receipt Date: 20170721
  Transmission Date: 20171127
  Serious: Yes (Other)
  Sender: FDA-Public Use
  Company Number: US-AMGEN-USASP2017103291

PATIENT
  Age: 41 Year
  Sex: Male

DRUGS (9)
  1. ENBREL [Suspect]
     Active Substance: ETANERCEPT
     Indication: RHEUMATOID ARTHRITIS
     Dosage: 50 MG, UNK
     Route: 065
     Dates: start: 201303, end: 201506
  2. SULFASALAZINE. [Suspect]
     Active Substance: SULFASALAZINE
     Indication: PRODUCT USED FOR UNKNOWN INDICATION
     Dosage: UNK
     Route: 065
  3. MELOXICAM. [Concomitant]
     Active Substance: MELOXICAM
     Indication: RHEUMATOID ARTHRITIS
     Dosage: 15 MG, UNK
     Route: 065
     Dates: start: 201311, end: 201506
  4. XELJANZ [Concomitant]
     Active Substance: TOFACITINIB CITRATE
     Dosage: UNK
     Route: 065
  5. XELJANZ XR [Suspect]
     Active Substance: TOFACITINIB CITRATE
     Indication: PRODUCT USED FOR UNKNOWN INDICATION
     Dosage: 11 MG, QD
     Route: 048
  6. PLAQUENIL [Concomitant]
     Active Substance: HYDROXYCHLOROQUINE SULFATE
     Indication: RHEUMATOID ARTHRITIS
     Dosage: UNK
     Route: 065
     Dates: start: 201303, end: 201506
  7. IMURAN [Concomitant]
     Active Substance: AZATHIOPRINE
     Indication: RHEUMATOID ARTHRITIS
     Dosage: UNK
     Route: 065
  8. CELLCEPT [Concomitant]
     Active Substance: MYCOPHENOLATE MOFETIL\MYCOPHENOLATE MOFETIL HYDROCHLORIDE
     Dosage: UNK
  9. METHOTREXATE. [Suspect]
     Active Substance: METHOTREXATE
     Indication: RHEUMATOID ARTHRITIS
     Dosage: UNK
     Route: 065

REACTIONS (33)
  - Capillary disorder [Unknown]
  - Hypertonic bladder [Unknown]
  - Pain [Not Recovered/Not Resolved]
  - Diarrhoea [Recovered/Resolved]
  - Chills [Unknown]
  - Aspiration joint [Unknown]
  - Oral herpes [Unknown]
  - Mucosal inflammation [Unknown]
  - Peripheral swelling [Unknown]
  - Joint swelling [Unknown]
  - Hand deformity [Unknown]
  - Gait disturbance [Unknown]
  - Fibromyalgia [Unknown]
  - Sudden visual loss [Unknown]
  - Dry skin [Unknown]
  - Musculoskeletal stiffness [Unknown]
  - Hair disorder [Unknown]
  - Impaired work ability [Unknown]
  - Depression [Unknown]
  - Erythema [Unknown]
  - Finger deformity [Unknown]
  - Skin mass [Recovering/Resolving]
  - Pruritus [Unknown]
  - Stress [Unknown]
  - Joint contracture [Unknown]
  - Uveitis [Unknown]
  - Weight decreased [Unknown]
  - Umbilical hernia [Unknown]
  - Pyrexia [Unknown]
  - Rash papular [Unknown]
  - Night sweats [Unknown]
  - Rash [Unknown]
  - Drug ineffective [Unknown]
